FAERS Safety Report 25966190 (Version 1)
Quarter: 2025Q4

REPORT INFORMATION
  Report Type: Spontaneous
  Country: EU (occurrence: EU)
  Receive Date: 20251028
  Receipt Date: 20251028
  Transmission Date: 20260119
  Serious: Yes (Other)
  Sender: SUNOVION
  Company Number: EU-Accord-509633

PATIENT
  Age: 77 Year
  Sex: Male

DRUGS (1)
  1. ORGOVYX [Suspect]
     Active Substance: RELUGOLIX
     Indication: Product used for unknown indication
     Dosage: UNK

REACTIONS (2)
  - Blood pressure increased [Unknown]
  - Hot flush [Unknown]

NARRATIVE: CASE EVENT DATE: 20250101
